FAERS Safety Report 20068435 (Version 1)
Quarter: 2021Q4

REPORT INFORMATION
  Report Type: Spontaneous
  Country: US (occurrence: None)
  Receive Date: 20211115
  Receipt Date: 20211115
  Transmission Date: 20220303
  Serious: Yes (Life-Threatening)
  Sender: FDA-Public Use
  Company Number: US-ROCHE-2956822

PATIENT
  Age: 37 Year
  Sex: Male
  Weight: 52.5 kg

DRUGS (1)
  1. TOCILIZUMAB [Suspect]
     Active Substance: TOCILIZUMAB
     Indication: COVID-19
     Route: 042
     Dates: start: 20211016, end: 20211016

REACTIONS (3)
  - Staphylococcal bacteraemia [Unknown]
  - Enterococcal bacteraemia [Unknown]
  - Off label use [Unknown]

NARRATIVE: CASE EVENT DATE: 20211103
